FAERS Safety Report 4365055-1 (Version None)
Quarter: 2004Q2

REPORT INFORMATION
  Report Type: 
  Country: None (occurrence: None)
  Receive Date: 20040521
  Receipt Date: 20040504
  Transmission Date: 20050107
  Serious: Yes (Death, Life-Threatening, Hospitalization)
  Sender: FDA-Public Use
  Company Number: A02200401509

PATIENT
  Age: 91 Year
  Sex: Male

DRUGS (1)
  1. PLAVIX [Suspect]
     Indication: ARTERITIS
     Dosage: ORAL
     Route: 048
     Dates: end: 20040301

REACTIONS (3)
  - CEREBROVASCULAR ACCIDENT [None]
  - HAEMATEMESIS [None]
  - MELAENA [None]
